FAERS Safety Report 12421867 (Version 2)
Quarter: 2016Q2

REPORT INFORMATION
  Report Type: Report from Study
  Country: CA (occurrence: CA)
  Receive Date: 20160531
  Receipt Date: 20160623
  Transmission Date: 20160815
  Serious: Yes (Death, Hospitalization)
  Sender: FDA-Public Use
  Company Number: CA-ABBVIE-16P-028-1639859-00

PATIENT
  Sex: Male

DRUGS (1)
  1. LUPRON DEPOT [Suspect]
     Active Substance: LEUPROLIDE ACETATE
     Indication: PROSTATE CANCER
     Route: 030
     Dates: start: 20130724, end: 20160413

REACTIONS (11)
  - Chills [Recovered/Resolved]
  - Fall [Recovered/Resolved]
  - Staphylococcal bacteraemia [Recovered/Resolved]
  - Urinary tract infection [Recovered/Resolved]
  - Back pain [Recovered/Resolved]
  - Urinary tract infection [Recovered/Resolved]
  - Pyrexia [Unknown]
  - Urinary tract infection [Recovered/Resolved]
  - Acute kidney injury [Unknown]
  - Renal failure [Fatal]
  - Asthenia [Unknown]

NARRATIVE: CASE EVENT DATE: 201507
